FAERS Safety Report 26058617 (Version 1)
Quarter: 2025Q4

REPORT INFORMATION
  Report Type: Spontaneous
  Country: US (occurrence: US)
  Receive Date: 20251118
  Receipt Date: 20251118
  Transmission Date: 20260117
  Serious: Yes (Hospitalization)
  Sender: ROCHE
  Company Number: US-ROCHE-10000432229

PATIENT
  Age: 46 Year
  Sex: Female

DRUGS (2)
  1. OCREVUS [Suspect]
     Active Substance: OCRELIZUMAB
     Indication: Multiple sclerosis
     Dosage: STRENGTH: 300MG/10ML; INFUSE 300MG IN 250ML 0.9% NS INTRAVENOUSLY AT 30ML/HR AND INCREASE BY 30ML/HR
     Route: 042
     Dates: start: 202110
  2. SODIUM CHLORIDE [Concomitant]
     Active Substance: SODIUM CHLORIDE
     Route: 042

REACTIONS (2)
  - Cerebrovascular accident [Unknown]
  - Multiple sclerosis pseudo relapse [Unknown]

NARRATIVE: CASE EVENT DATE: 20250501
